FAERS Safety Report 10285818 (Version 6)
Quarter: 2014Q4

REPORT INFORMATION
  Report Type: Report from Study
  Country: US (occurrence: None)
  Receive Date: 20140703
  Receipt Date: 20141215
  Transmission Date: 20150528
  Serious: Yes (Hospitalization)
  Sender: FDA-Public Use
  Company Number: UNT-2014-002787

PATIENT
  Age: 63 Year
  Sex: Female

DRUGS (21)
  1. CIPROFLOXACIN (CIPROFLOXACIN) [Concomitant]
     Active Substance: CIPROFLOXACIN
  2. INFLUENZA VACCINE (INFLUENZA VACCINE) [Concomitant]
  3. POTASSIUM CHILORIDE (POTASSIUM CHLORIDE) [Concomitant]
  4. PROPANOLOL /00030001/ (PROPRANOLOL) [Concomitant]
  5. PROZAC [Concomitant]
     Active Substance: FLUOXETINE HYDROCHLORIDE
  6. SIMETHICONE (SIMETICONE) [Concomitant]
  7. TREPROSTINIL SODIUM [Suspect]
     Active Substance: TREPROSTINIL SODIUM
     Indication: PULMONARY ARTERIAL HYPERTENSION
     Dosage: 9.451 MG/DAY, IV DRIP
     Route: 041
     Dates: start: 20110719
  8. TRACLEER /01587701/ (BOSENTAN) [Concomitant]
  9. LASIX /00032601/ (FUROSEMIDE) [Concomitant]
  10. NORCO (HYDROCODONE BITARTRATE, PARACETAMOL) [Concomitant]
  11. AMITRIPTYLINE (AMITRIPTYLINE) [Concomitant]
     Active Substance: AMITRIPTYLINE
  12. BACTRIM DS (SULFAMETHOXAZOLE, TRIMETHOPRIM) [Concomitant]
  13. DIPHENHYDRAMINE (DIPHENHYDRAMINE) [Concomitant]
     Active Substance: DIPHENHYDRAMINE
  14. PEPCID [Concomitant]
     Active Substance: FAMOTIDINE
  15. SPIRONOLACTONE (SPIRONOLACTONE) [Concomitant]
     Active Substance: SPIRONOLACTONE
  16. TYLENOL /00020001/ (PARACETAMOL) [Concomitant]
  17. SILDENAFIL /01367502/ (SILDENAFIL CITRATE) [Concomitant]
  18. AMBIEN [Concomitant]
     Active Substance: ZOLPIDEM TARTRATE
  19. COUMADIN /00014802/ (WARFARIN SODIUM) [Concomitant]
  20. MAGNESIUM OXIDE (MAGNESIUM OXIDE) [Concomitant]
     Active Substance: MAGNESIUM OXIDE
  21. OXYGEN (OXYGEN) [Concomitant]
     Active Substance: OXYGEN

REACTIONS (8)
  - Implant site pain [None]
  - Pneumonia [None]
  - Implant site erythema [None]
  - Sepsis [None]
  - Injection site pain [None]
  - Hypoxia [None]
  - Musculoskeletal pain [None]
  - Pyrexia [None]

NARRATIVE: CASE EVENT DATE: 20140618
